FAERS Safety Report 9445198 (Version 3)
Quarter: 2013Q3

REPORT INFORMATION
  Report Type: Spontaneous
  Country: GB (occurrence: None)
  Receive Date: 20130802
  Receipt Date: 20130903
  Transmission Date: 20140515
  Serious: Yes (Hospitalization)
  Sender: FDA-Public Use
  Company Number: AG-2013-014712

PATIENT
  Age: 80 Year
  Sex: Male
  Weight: 80 kg

DRUGS (9)
  1. CHLORAMBUCIL (CHLORAMBUCIL) (UNKNOWN) [Suspect]
     Indication: CHRONIC LYMPHOCYTIC LEUKAEMIA
     Dosage: 126MG CYLIC (1 CYCLICAL), INTRAVENOUS
     Route: 042
     Dates: start: 20130522
  2. OFATUMUMAB (OFATUMUMAB) (UNKNOWN) [Suspect]
     Indication: CHRONIC LYMPHOCYTIC LEUKAEMIA
     Dosage: 300MG CYCLIC (1CYCLICAL) INTRAV
     Route: 042
     Dates: start: 20130522
  3. PARACETAMOL (PARACETAMOL) (UNKNOWN) [Concomitant]
  4. CHLOROPHENAMINE (CHLOROPHENAMINE) (UNKNOWN) [Concomitant]
  5. PREDNISOLONE [Suspect]
     Indication: CHRONIC LYMPHOCYTIC LEUKAEMIA
     Dosage: 200MG CYCLIC (1 CYCLICAL),INTRAVENOUS (NOT OTHERWISE SPECIFIED)
     Dates: start: 20130522
  6. ALLOPURINOL [Suspect]
     Indication: CHRONIC LYMPHOCYTIC LEUKAEMIA
     Dosage: 300MG CYCLIC (1 CYCLICAL),ORAL
     Route: 048
     Dates: start: 20130522, end: 20130625
  7. METOCLOPRAMIDE (METOCLOPRAMIDE) (UNKNOWN) [Concomitant]
  8. ACICLOVIR [Suspect]
     Indication: CHRONIC LYMPHOCYTIC LEUKAEMIA
     Dosage: 200MG CYCLIC (1 CYCLICAL),ORAL
     Route: 048
     Dates: start: 20130522
  9. GRANULOCYTE COLONY STIMULATIONG FACTOR (COLONY STIMULATING FACTORS) (UNKNOWN) [Concomitant]

REACTIONS (6)
  - Rash [None]
  - Pyrexia [None]
  - Escherichia sepsis [None]
  - Rash [None]
  - Blood sodium decreased [None]
  - Blood bilirubin increased [None]
